FAERS Safety Report 10613383 (Version 1)
Quarter: 2014Q4

REPORT INFORMATION
  Report Type: Spontaneous
  Country: DE (occurrence: DE)
  Receive Date: 20141128
  Receipt Date: 20141128
  Transmission Date: 20150529
  Serious: Yes (Congenital Anomaly, Other)
  Sender: FDA-Public Use
  Company Number: DE-AUROBINDO-AUR-APL-2014-12348

PATIENT
  Age: 1 Day
  Sex: Male
  Weight: 3.45 kg

DRUGS (6)
  1. AGYRAX                             /00759701/ [Concomitant]
     Indication: VOMITING IN PREGNANCY
     Route: 064
  2. UTROGEST [Concomitant]
     Active Substance: PROGESTERONE
     Indication: ASSISTED FERTILISATION
     Dosage: 200 MG, ONCE A DAY
     Route: 064
  3. ESTRADIOL. [Concomitant]
     Active Substance: ESTRADIOL
     Indication: ASSISTED FERTILISATION
     Dosage: 6 MG, ONCE A DAY
     Route: 064
  4. PAROXETINE 20MG (PAROXETINE) UNKNOWN, 20MG [Suspect]
     Active Substance: PAROXETINE\PAROXETINE HYDROCHLORIDE
     Indication: PANIC DISORDER
     Dosage: 20 MG, ONCE A DAY
     Route: 064
     Dates: start: 20130806, end: 20140426
  5. SYMBICORT [Concomitant]
     Active Substance: BUDESONIDE\FORMOTEROL FUMARATE DIHYDRATE
     Indication: ASTHMA
     Dosage: UNK
     Route: 064
     Dates: start: 20130806, end: 20140426
  6. FOLIO FORTE [Concomitant]
     Active Substance: FOLIC ACID\VITAMINS
     Indication: PROPHYLAXIS OF NEURAL TUBE DEFECT
     Dosage: 0.8 MG, ONCE A DAY
     Route: 064
     Dates: start: 20130806, end: 20140426

REACTIONS (5)
  - Patent ductus arteriosus [Recovered/Resolved]
  - Atrial septal defect [Not Recovered/Not Resolved]
  - Ventricular septal defect [Not Recovered/Not Resolved]
  - Foetal exposure during pregnancy [Unknown]
  - Aorta hypoplasia [Not Recovered/Not Resolved]

NARRATIVE: CASE EVENT DATE: 20140426
